FAERS Safety Report 14151738 (Version 1)
Quarter: 2017Q4

REPORT INFORMATION
  Report Type: Spontaneous
  Country: US (occurrence: None)
  Receive Date: 20171101
  Receipt Date: 20171101
  Transmission Date: 20180321
  Serious: Yes (Hospitalization)
  Sender: FDA-Public Use
  Company Number: None

PATIENT
  Age: 57 Year
  Sex: Female

DRUGS (19)
  1. LISINOPRIL. [Concomitant]
     Active Substance: LISINOPRIL
  2. AMOX/K CLAV [Concomitant]
     Active Substance: AMOXICILLIN\CLAVULANATE POTASSIUM
  3. ONDANSETRON [Concomitant]
     Active Substance: ONDANSETRON
  4. FLUOXETINE [Concomitant]
     Active Substance: FLUOXETINE HYDROCHLORIDE
  5. LEVOTHYROXINE. [Concomitant]
     Active Substance: LEVOTHYROXINE
  6. ALPRAZOLAM. [Concomitant]
     Active Substance: ALPRAZOLAM
  7. HYDROCOC/APAP [Concomitant]
  8. DOXYCYC MONO [Concomitant]
     Active Substance: DOXYCYCLINE
  9. PREMARIN [Concomitant]
     Active Substance: ESTROGENS, CONJUGATED
  10. TRIMETHOPRIM. [Concomitant]
     Active Substance: TRIMETHOPRIM
  11. NAPROXEN. [Concomitant]
     Active Substance: NAPROXEN
  12. IBRANCE [Suspect]
     Active Substance: PALBOCICLIB
     Indication: BREAST CANCER
     Route: 048
     Dates: start: 20170105
  13. LETROZOLE. [Concomitant]
     Active Substance: LETROZOLE
  14. BUPROPION. [Concomitant]
     Active Substance: BUPROPION
  15. FENTANYL. [Concomitant]
     Active Substance: FENTANYL
  16. GABAPENTIN. [Concomitant]
     Active Substance: GABAPENTIN
  17. CIPROFLOXACIN. [Concomitant]
     Active Substance: CIPROFLOXACIN
  18. NITROFURANTOIN. [Concomitant]
     Active Substance: NITROFURANTOIN
  19. FLUOCIN ACET [Concomitant]

REACTIONS (1)
  - Cystitis [None]

NARRATIVE: CASE EVENT DATE: 20171024
